FAERS Safety Report 15819707 (Version 1)
Quarter: 2019Q1

REPORT INFORMATION
  Report Type: Other
  Country: NL (occurrence: NL)
  Receive Date: 20190114
  Receipt Date: 20190114
  Transmission Date: 20190417
  Serious: Yes (Other)
  Sender: FDA-Public Use
  Company Number: NL-APOTEX-2019AP005091

PATIENT
  Age: 52 Year
  Sex: Female
  Weight: 57 kg

DRUGS (3)
  1. CLOMIPRAMINE [Concomitant]
     Active Substance: CLOMIPRAMINE
     Indication: PRODUCT USED FOR UNKNOWN INDICATION
     Dosage: 10 MG, QD (1 DD 10 MG)
     Route: 065
  2. CARBAMAZEPINE. [Suspect]
     Active Substance: CARBAMAZEPINE
     Indication: PRODUCT USED FOR UNKNOWN INDICATION
     Dosage: 200 MG, Q.12H (2 DD 200 MG)
     Route: 065
  3. MICROGYNON                         /00022701/ [Suspect]
     Active Substance: ETHINYL ESTRADIOL\LEVONORGESTREL ACETATE
     Indication: MENSTRUAL CYCLE MANAGEMENT
     Dosage: 1 DF, UNK (1DD1)
     Route: 065
     Dates: start: 201801, end: 201808

REACTIONS (1)
  - Thrombosis [Recovered/Resolved]

NARRATIVE: CASE EVENT DATE: 201808
